FAERS Safety Report 20187417 (Version 7)
Quarter: 2022Q4

REPORT INFORMATION
  Report Type: Spontaneous
  Country: JP (occurrence: JP)
  Receive Date: 20211215
  Receipt Date: 20221227
  Transmission Date: 20230113
  Serious: Yes (Hospitalization, Other)
  Sender: FDA-Public Use
  Company Number: JP-NOVARTISPH-NVSJ2021JP020162

PATIENT
  Age: 11 Year
  Sex: Male
  Weight: 48.6 kg

DRUGS (52)
  1. NEORAL [Suspect]
     Active Substance: CYCLOSPORINE
     Indication: Still^s disease
     Dosage: 100 MG
     Route: 048
     Dates: start: 20181110
  2. ILARIS [Concomitant]
     Active Substance: CANAKINUMAB
     Indication: Still^s disease
     Dosage: 150 MG
     Route: 058
     Dates: start: 20201008
  3. ILARIS [Concomitant]
     Active Substance: CANAKINUMAB
     Dosage: 150 MG
     Route: 058
     Dates: start: 20201105
  4. ILARIS [Concomitant]
     Active Substance: CANAKINUMAB
     Dosage: 150 MG
     Route: 058
     Dates: start: 20201203
  5. ILARIS [Concomitant]
     Active Substance: CANAKINUMAB
     Dosage: 150 MG
     Route: 058
     Dates: start: 20021228
  6. ILARIS [Concomitant]
     Active Substance: CANAKINUMAB
     Dosage: 150 MG
     Route: 058
     Dates: start: 20210127
  7. ILARIS [Concomitant]
     Active Substance: CANAKINUMAB
     Dosage: 150 MG
     Route: 058
     Dates: start: 20210225
  8. ILARIS [Concomitant]
     Active Substance: CANAKINUMAB
     Dosage: 150 MG
     Route: 058
     Dates: start: 20210325
  9. ILARIS [Concomitant]
     Active Substance: CANAKINUMAB
     Dosage: 150 MG
     Route: 058
     Dates: start: 20210422
  10. ILARIS [Concomitant]
     Active Substance: CANAKINUMAB
     Dosage: 150 MG
     Route: 058
     Dates: start: 20210520
  11. ILARIS [Concomitant]
     Active Substance: CANAKINUMAB
     Dosage: 150 MG
     Route: 058
     Dates: start: 20210616
  12. ILARIS [Concomitant]
     Active Substance: CANAKINUMAB
     Dosage: 150 MG
     Route: 058
     Dates: start: 20210715
  13. ILARIS [Concomitant]
     Active Substance: CANAKINUMAB
     Dosage: 150 MG
     Route: 058
     Dates: start: 20210812
  14. ILARIS [Concomitant]
     Active Substance: CANAKINUMAB
     Dosage: 150 MG
     Route: 058
     Dates: start: 20210924
  15. ILARIS [Concomitant]
     Active Substance: CANAKINUMAB
     Dosage: 150 MG
     Route: 058
     Dates: start: 20211021
  16. ILARIS [Concomitant]
     Active Substance: CANAKINUMAB
     Dosage: 150 MG
     Route: 058
     Dates: start: 20211118
  17. ILARIS [Concomitant]
     Active Substance: CANAKINUMAB
     Dosage: 150 MG
     Route: 058
     Dates: start: 20211216
  18. ILARIS [Concomitant]
     Active Substance: CANAKINUMAB
     Dosage: 150 MG
     Route: 058
     Dates: start: 20220113
  19. ILARIS [Concomitant]
     Active Substance: CANAKINUMAB
     Dosage: 225 MG
     Route: 058
     Dates: start: 20220210
  20. ILARIS [Concomitant]
     Active Substance: CANAKINUMAB
     Dosage: 225 MG
     Route: 058
     Dates: start: 20220310
  21. ILARIS [Concomitant]
     Active Substance: CANAKINUMAB
     Dosage: 225 MG
     Route: 058
     Dates: start: 20220407
  22. ILARIS [Concomitant]
     Active Substance: CANAKINUMAB
     Dosage: 225 MG
     Route: 058
     Dates: start: 20220502
  23. ILARIS [Concomitant]
     Active Substance: CANAKINUMAB
     Dosage: 225 MG
     Route: 058
     Dates: start: 20220602
  24. ILARIS [Concomitant]
     Active Substance: CANAKINUMAB
     Dosage: 225 MG
     Route: 058
     Dates: start: 20220702
  25. ILARIS [Concomitant]
     Active Substance: CANAKINUMAB
     Dosage: 240 MG
     Route: 058
     Dates: start: 20220728
  26. ILARIS [Concomitant]
     Active Substance: CANAKINUMAB
     Dosage: 240 MG
     Route: 058
     Dates: start: 20220825
  27. ILARIS [Concomitant]
     Active Substance: CANAKINUMAB
     Dosage: 240 MG
     Route: 058
     Dates: start: 20220922
  28. METHYLPREDNISOLONE [Concomitant]
     Active Substance: METHYLPREDNISOLONE
     Indication: Still^s disease
     Dosage: 1000 MG
     Route: 065
     Dates: start: 20161012, end: 20161021
  29. METHYLPREDNISOLONE [Concomitant]
     Active Substance: METHYLPREDNISOLONE
     Dosage: 1000 MG
     Route: 065
     Dates: start: 20170701, end: 20170709
  30. METHYLPREDNISOLONE [Concomitant]
     Active Substance: METHYLPREDNISOLONE
     Dosage: 1000 MG
     Route: 065
     Dates: start: 20210914, end: 20210916
  31. BONALON [Concomitant]
     Active Substance: ALENDRONATE SODIUM
     Indication: Product used for unknown indication
     Dosage: 17.5 MG
     Route: 048
  32. ACTEMRA [Concomitant]
     Active Substance: TOCILIZUMAB
     Indication: Still^s disease
     Dosage: 320 MG
     Route: 065
     Dates: start: 20170711, end: 20200207
  33. ACTEMRA [Concomitant]
     Active Substance: TOCILIZUMAB
     Dosage: 400 MG
     Route: 065
     Dates: start: 20200219, end: 20200918
  34. COLCHICINE [Concomitant]
     Active Substance: COLCHICINE
     Indication: Still^s disease
     Dosage: 1 MG
     Route: 048
     Dates: start: 20180608, end: 20191111
  35. PREDNISOLONE [Concomitant]
     Active Substance: PREDNISOLONE
     Indication: Still^s disease
     Dosage: 5 MG
     Route: 048
     Dates: start: 20201003, end: 20201104
  36. PREDNISOLONE [Concomitant]
     Active Substance: PREDNISOLONE
     Dosage: 4 MG
     Route: 048
     Dates: start: 20201105, end: 20201227
  37. PREDNISOLONE [Concomitant]
     Active Substance: PREDNISOLONE
     Dosage: 3 MG
     Route: 048
     Dates: start: 20201228, end: 20210421
  38. PREDNISOLONE [Concomitant]
     Active Substance: PREDNISOLONE
     Dosage: 2 MG
     Route: 048
     Dates: start: 20210422, end: 20210913
  39. PREDNISOLONE [Concomitant]
     Active Substance: PREDNISOLONE
     Dosage: 30 MG
     Route: 048
     Dates: start: 20210917, end: 20210923
  40. PREDNISOLONE [Concomitant]
     Active Substance: PREDNISOLONE
     Dosage: 25 MG
     Route: 048
     Dates: start: 20210924, end: 20211006
  41. PREDNISOLONE [Concomitant]
     Active Substance: PREDNISOLONE
     Dosage: 20 MG
     Route: 048
     Dates: start: 20211007, end: 20211020
  42. PREDNISOLONE [Concomitant]
     Active Substance: PREDNISOLONE
     Dosage: 17.5 MG
     Route: 048
     Dates: start: 20211021, end: 20211117
  43. PREDNISOLONE [Concomitant]
     Active Substance: PREDNISOLONE
     Dosage: 15 MG
     Route: 048
     Dates: start: 20211118, end: 20211215
  44. PREDNISOLONE [Concomitant]
     Active Substance: PREDNISOLONE
     Dosage: 12.5 MG
     Route: 048
     Dates: start: 20211216, end: 20220112
  45. PREDNISOLONE [Concomitant]
     Active Substance: PREDNISOLONE
     Dosage: 10 MG
     Route: 048
     Dates: start: 20220113, end: 20220309
  46. PREDNISOLONE [Concomitant]
     Active Substance: PREDNISOLONE
     Dosage: 9 MG
     Route: 048
     Dates: start: 20220310, end: 20220406
  47. PREDNISOLONE [Concomitant]
     Active Substance: PREDNISOLONE
     Dosage: 7.5 MG
     Route: 048
     Dates: start: 20220407, end: 20220501
  48. PREDNISOLONE [Concomitant]
     Active Substance: PREDNISOLONE
     Dosage: 6 MG
     Route: 048
     Dates: start: 20220502, end: 20220601
  49. PREDNISOLONE [Concomitant]
     Active Substance: PREDNISOLONE
     Dosage: 4.5 MG
     Route: 048
     Dates: start: 20220602, end: 20220701
  50. PREDNISOLONE [Concomitant]
     Active Substance: PREDNISOLONE
     Dosage: 3 MG
     Route: 048
     Dates: start: 20220702, end: 20220824
  51. PREDNISOLONE [Concomitant]
     Active Substance: PREDNISOLONE
     Dosage: 2 MG
     Route: 048
     Dates: start: 20220825, end: 20220921
  52. PREDNISOLONE [Concomitant]
     Active Substance: PREDNISOLONE
     Dosage: 1 MG
     Route: 048
     Dates: start: 20220922

REACTIONS (4)
  - Still^s disease [Recovered/Resolved]
  - Disease recurrence [Recovered/Resolved]
  - Drug level decreased [Unknown]
  - Product use in unapproved indication [Unknown]

NARRATIVE: CASE EVENT DATE: 20181110
